FAERS Safety Report 9632341 (Version 2)
Quarter: 2013Q4

REPORT INFORMATION
  Report Type: Spontaneous
  Country: IT (occurrence: IT)
  Receive Date: 20131018
  Receipt Date: 20131212
  Transmission Date: 20140711
  Serious: Yes (Other)
  Sender: FDA-Public Use
  Company Number: IT-PFIZER INC-2013298496

PATIENT
  Age: 80 Year
  Sex: Male

DRUGS (2)
  1. SERTRALINE HCL [Suspect]
     Dosage: UNK
     Dates: start: 20120828, end: 20130827
  2. TEVETENS [Concomitant]

REACTIONS (5)
  - Bradycardia [Recovering/Resolving]
  - Palpitations [Recovering/Resolving]
  - Ejection fraction decreased [Unknown]
  - Supraventricular extrasystoles [Unknown]
  - Ventricular extrasystoles [Unknown]
